FAERS Safety Report 10975417 (Version 1)
Quarter: 2015Q2

REPORT INFORMATION
  Report Type: Spontaneous
  Country: US (occurrence: US)
  Receive Date: 20150401
  Receipt Date: 20150401
  Transmission Date: 20150821
  Serious: Yes (Death)
  Sender: FDA-Public Use
  Company Number: US-UNITED THERAPEUTICS-UNT-2015-003446

PATIENT
  Age: 54 Year
  Sex: Female
  Weight: 147.85 kg

DRUGS (1)
  1. ORENITRAM [Suspect]
     Active Substance: TREPROSTINIL
     Indication: PULMONARY ARTERIAL HYPERTENSION
     Dosage: 2 MG, Q8H
     Route: 048
     Dates: start: 20140714

REACTIONS (1)
  - Death [Fatal]

NARRATIVE: CASE EVENT DATE: 20150317
